FAERS Safety Report 7471111-1 (Version None)
Quarter: 2011Q2

REPORT INFORMATION
  Report Type: 
  Country: None (occurrence: None)
  Receive Date: 20110506
  Receipt Date: 20110506
  Transmission Date: 20111010
  Serious: No
  Sender: FDA-Public Use
  Company Number: None

PATIENT
  Sex: Female
  Weight: 52.1637 kg

DRUGS (1)
  1. CARBAMAZEPINE [Suspect]
     Indication: CONVULSION
     Dosage: 200MG 1-4 TABS Q4-6HRS AS NEEDED P.O.
     Route: 048
     Dates: start: 20100801, end: 20110301

REACTIONS (5)
  - NAUSEA [None]
  - VOMITING [None]
  - ABDOMINAL PAIN [None]
  - ABDOMINAL DISCOMFORT [None]
  - CONVULSION [None]
